FAERS Safety Report 8777603 (Version 2)
Quarter: 2012Q4

REPORT INFORMATION
  Report Type: 
  Country: US (occurrence: US)
  Receive Date: 20120910
  Receipt Date: 20120920
  Transmission Date: 20130627
  Serious: Yes (Hospitalization, Other)
  Sender: FDA-Public Use
  Company Number: US-PFIZER INC-2012218277

PATIENT
  Age: 93 Year
  Sex: Male
  Weight: 75.74 kg

DRUGS (10)
  1. TOVIAZ [Suspect]
     Indication: URINARY INCONTINENCE
     Dosage: 8 mg, daily
     Route: 048
     Dates: start: 2012
  2. ATENOLOL [Concomitant]
     Indication: CARDIAC DISORDER
     Dosage: half of 50 mg tablet, daily
     Route: 048
  3. ATENOLOL [Concomitant]
     Indication: HYPERTENSION
  4. DILTIAZEM HYDROCHLORIDE [Concomitant]
     Indication: CARDIAC DISORDER
     Dosage: 240 mg, daily
  5. FUROSEMIDE [Concomitant]
     Dosage: 20 mg, daily
  6. POTASSIUM CHLORIDE [Concomitant]
     Dosage: 10 mEq, 2x/day
  7. ALPRAZOLAM [Concomitant]
     Indication: ANXIETY
     Dosage: 0.5 mg, as needed
  8. ALPRAZOLAM [Concomitant]
     Indication: INSOMNIA
  9. LANOXIN [Concomitant]
     Dosage: 0.25 mg, daily
  10. ISOSORBIDE MONONITRATE [Concomitant]
     Dosage: 30 mg, daily

REACTIONS (3)
  - Drug dispensing error [Unknown]
  - Urinary retention [Recovered/Resolved]
  - Blood urine present [Unknown]
